FAERS Safety Report 8169536-4 (Version None)
Quarter: 2012Q1

REPORT INFORMATION
  Report Type: 
  Country: None (occurrence: None)
  Receive Date: 20120228
  Receipt Date: 20120217
  Transmission Date: 20120608
  Serious: Yes (Other)
  Sender: FDA-Public Use
  Company Number: US-SANOFI-AVENTIS-2012SA011291

PATIENT
  Age: 66 Year
  Sex: Female

DRUGS (2)
  1. SOLOSTAR [Suspect]
     Dates: start: 20090101
  2. LANTUS [Suspect]
     Dosage: 44-46 UNITS NIGHTLY
     Route: 058
     Dates: start: 20090101

REACTIONS (3)
  - CATARACT [None]
  - ACCIDENT AT HOME [None]
  - FOOT FRACTURE [None]
